FAERS Safety Report 4716364-5 (Version None)
Quarter: 2005Q3

REPORT INFORMATION
  Report Type: 
  Country: None (occurrence: None)
  Receive Date: 20050715
  Receipt Date: 20050715
  Transmission Date: 20060218
  Serious: No
  Sender: FDA-Public Use
  Company Number: None

PATIENT
  Sex: Male
  Weight: 83.6 kg

DRUGS (13)
  1. WARFARIN 2 MG [Suspect]
     Indication: AORTIC VALVE REPLACEMENT
     Dosage: 6 MG/4 MG M + P /ROW
     Dates: start: 20020813, end: 20050714
  2. WARFARIN 2 MG [Suspect]
     Indication: INTERNATIONAL NORMALISED RATIO
     Dosage: 6 MG/4 MG M + P /ROW
     Dates: start: 20020813, end: 20050714
  3. FOLIC ACID [Concomitant]
  4. HYDROXYCHLOROQUINE SULFATE [Concomitant]
  5. LEFLUNAMIDE [Concomitant]
  6. LISINOPRIL [Concomitant]
  7. LOVASTATIN [Concomitant]
  8. METHOERAXATE [Concomitant]
  9. METOPROLOL [Concomitant]
  10. PREDNISONE [Concomitant]
  11. SILDENAFIL [Concomitant]
  12. UREA [Concomitant]
  13. SERTRALINE HCL [Concomitant]

REACTIONS (2)
  - HAEMATURIA [None]
  - URINARY TRACT INFECTION [None]
